FAERS Safety Report 4430407-8 (Version None)
Quarter: 2004Q3

REPORT INFORMATION
  Report Type: 
  Country: None (occurrence: None)
  Receive Date: 20040820
  Receipt Date: 20040810
  Transmission Date: 20050211
  Serious: Yes (Other)
  Sender: FDA-Public Use
  Company Number: GB-MERCK-0408GBR00092

PATIENT
  Age: 60 Year
  Sex: Female
  Weight: 59 kg

DRUGS (3)
  1. ZETIA [Suspect]
     Indication: BLOOD CHOLESTEROL INCREASED
     Route: 048
     Dates: start: 20030620
  2. ZOCOR [Concomitant]
     Route: 048
     Dates: start: 19980101, end: 20030306
  3. SIMVASTATIN [Concomitant]
     Route: 065
     Dates: start: 20030307, end: 20040426

REACTIONS (1)
  - DRUG INEFFECTIVE [None]
